FAERS Safety Report 4369954-6 (Version None)
Quarter: 2004Q2

REPORT INFORMATION
  Report Type: 
  Country: None (occurrence: None)
  Receive Date: 20040527
  Receipt Date: 20040519
  Transmission Date: 20050107
  Serious: Yes (Life-Threatening)
  Sender: FDA-Public Use
  Company Number: 2004SE01853

PATIENT
  Age: 70 Year
  Sex: Male
  Weight: 73 kg

DRUGS (8)
  1. BLOPRESS [Suspect]
     Indication: HYPERTENSION
     Dosage: 8 MG DAILY PO
     Route: 048
     Dates: start: 20030411, end: 20030626
  2. BLOPRESS [Suspect]
     Indication: HYPERTENSION
     Dosage: 12 MG DAILY PO
     Route: 048
     Dates: start: 20030627, end: 20030711
  3. MELOXICAM [Concomitant]
  4. AMLODIPINE BESYLATE [Concomitant]
  5. GLYBURIDE [Concomitant]
  6. BEZAFIBRATE HYDROCHLORIDE [Concomitant]
  7. RANITIDINE [Concomitant]
  8. EPALRESTAT [Concomitant]

REACTIONS (1)
  - HYPOPHARYNGEAL CANCER [None]
